FAERS Safety Report 8795016 (Version 2)
Quarter: 2015Q2

REPORT INFORMATION
  Report Type: Report from Study
  Country: US (occurrence: US)
  Receive Date: 20120917
  Receipt Date: 20150619
  Transmission Date: 20150821
  Serious: Yes (Death)
  Sender: FDA-Public Use
  Company Number: US-ROCHE-1127496

PATIENT
  Sex: Female

DRUGS (8)
  1. ROXICET [Concomitant]
     Active Substance: ACETAMINOPHEN\OXYCODONE HYDROCHLORIDE
  2. PACLITAXEL. [Concomitant]
     Active Substance: PACLITAXEL
  3. MILK OF MAGNESIA [Concomitant]
     Active Substance: MAGNESIUM HYDROXIDE
  4. PRILOSEC [Concomitant]
     Active Substance: OMEPRAZOLE MAGNESIUM
  5. FENTANYL. [Concomitant]
     Active Substance: FENTANYL
  6. DURAGESIC [Concomitant]
     Active Substance: FENTANYL
     Route: 065
  7. CARBOPLATIN. [Concomitant]
     Active Substance: CARBOPLATIN
  8. AVASTIN [Suspect]
     Active Substance: BEVACIZUMAB
     Indication: OESOPHAGEAL CARCINOMA
     Route: 042
     Dates: start: 20060106

REACTIONS (5)
  - Renal artery arteriosclerosis [Unknown]
  - Metastases to liver [Unknown]
  - Aortic arteriosclerosis [Unknown]
  - Off label use [Unknown]
  - Death [Fatal]
